FAERS Safety Report 6106400-6 (Version None)
Quarter: 2009Q1

REPORT INFORMATION
  Report Type: 
  Country: None (occurrence: None)
  Receive Date: 20090306
  Receipt Date: 20090306
  Transmission Date: 20090719
  Serious: Yes (Other)
  Sender: FDA-Public Use
  Company Number: IT-ROXANE LABORATORIES, INC.-2009-DE-01900GD

PATIENT
  Age: 22 Year
  Sex: Female

DRUGS (4)
  1. MORPHINE [Suspect]
     Indication: PAIN
     Dosage: 20 MCG/KG/H
     Route: 042
  2. DIMETHYL SULFOXIDE [Suspect]
     Dosage: 444 MG/KG
  3. THIOTEPA [Concomitant]
     Indication: BONE MARROW CONDITIONING REGIMEN
     Dosage: 900 MG/ME2
  4. ETOPOSIDE [Concomitant]
     Indication: BONE MARROW CONDITIONING REGIMEN
     Dosage: 1,500 MG/ME2

REACTIONS (5)
  - DRUG INTERACTION [None]
  - OLIGURIA [None]
  - OXYGEN SATURATION DECREASED [None]
  - RESPIRATORY DEPRESSION [None]
  - SOMNOLENCE [None]
